FAERS Safety Report 6129973-6 (Version None)
Quarter: 2009Q1

REPORT INFORMATION
  Report Type: 
  Country: None (occurrence: None)
  Receive Date: 20090324
  Receipt Date: 20090317
  Transmission Date: 20090719
  Serious: Yes (Other)
  Sender: FDA-Public Use
  Company Number: ES-MERCK-0903ESP00036

PATIENT
  Age: 24 Month
  Sex: Male

DRUGS (1)
  1. SINGULAIR [Suspect]
     Route: 048
     Dates: start: 20070101, end: 20090101

REACTIONS (3)
  - AGGRESSION [None]
  - SELF INJURIOUS BEHAVIOUR [None]
  - SOMNAMBULISM [None]
